FAERS Safety Report 25118039 (Version 1)
Quarter: 2025Q1

REPORT INFORMATION
  Report Type: Spontaneous
  Country: US (occurrence: None)
  Receive Date: 20250322
  Receipt Date: 20250322
  Transmission Date: 20250409
  Serious: Yes (Hospitalization)
  Sender: FDA-CTU
  Company Number: None

PATIENT
  Age: 62 Year
  Sex: Male
  Weight: 94.5 kg

DRUGS (1)
  1. PEMBROLIZUMAB [Suspect]
     Active Substance: PEMBROLIZUMAB

REACTIONS (8)
  - Confusional state [None]
  - Lethargy [None]
  - Radiation injury [None]
  - Hyponatraemia [None]
  - Metabolic acidosis [None]
  - Euglycaemic diabetic ketoacidosis [None]
  - Oedema peripheral [None]
  - Dysphagia [None]

NARRATIVE: CASE EVENT DATE: 20250318
